FAERS Safety Report 14984052 (Version 1)
Quarter: 2018Q2

REPORT INFORMATION
  Report Type: Spontaneous
  Country: US (occurrence: US)
  Receive Date: 20180515
  Receipt Date: 20180515
  Transmission Date: 20180711
  Serious: Yes (Hospitalization)
  Sender: FDA-Public Use
  Company Number: None

PATIENT
  Age: 5 Year
  Sex: Male
  Weight: 8.62 kg

DRUGS (2)
  1. BICILLIN [Suspect]
     Active Substance: PENICILLIN G BENZATHINE
     Indication: PHARYNGITIS STREPTOCOCCAL
     Dosage: OTHER DOSE:600,00 UNITS  WITH 1% LIDOCAINE, ONCE, IM TO LEFT LEG?
     Route: 030
     Dates: start: 20180226, end: 20180226
  2. AMOXICILLIN. [Concomitant]
     Active Substance: AMOXICILLIN

REACTIONS (9)
  - Musculoskeletal disorder [None]
  - Gait disturbance [None]
  - Hypoaesthesia [None]
  - Rhabdomyolysis [None]
  - Rash erythematous [None]
  - Pain [None]
  - Embolia cutis medicamentosa [None]
  - Transaminases increased [None]
  - Livedo reticularis [None]

NARRATIVE: CASE EVENT DATE: 20180226
